FAERS Safety Report 7338039-9 (Version None)
Quarter: 2011Q1

REPORT INFORMATION
  Report Type: 
  Country: None (occurrence: None)
  Receive Date: 20110308
  Receipt Date: 20110222
  Transmission Date: 20110831
  Serious: Yes (Hospitalization)
  Sender: FDA-Public Use
  Company Number: PHHY2011CN14337

PATIENT
  Sex: Female
  Weight: 60 kg

DRUGS (1)
  1. LETROZOLE [Suspect]
     Indication: BREAST CANCER
     Dosage: 1 DF, QD
     Route: 048
     Dates: start: 20090728, end: 20100902

REACTIONS (8)
  - ABDOMINAL DISTENSION [None]
  - ABDOMINAL PAIN [None]
  - GRANULOCYTOPENIA [None]
  - IRRITABILITY [None]
  - NAUSEA [None]
  - HYPERCHLORHYDRIA [None]
  - PANCREATITIS ACUTE [None]
  - VOMITING [None]
